FAERS Safety Report 6614427-0 (Version None)
Quarter: 2010Q1

REPORT INFORMATION
  Report Type: 
  Country: None (occurrence: None)
  Receive Date: 20100304
  Receipt Date: 20100219
  Transmission Date: 20100710
  Serious: Yes (Other)
  Sender: FDA-Public Use
  Company Number: US-ELI_LILLY_AND_COMPANY-US201002006318

PATIENT
  Sex: Female

DRUGS (11)
  1. FORTEO [Suspect]
     Indication: OSTEOPOROSIS
     Dosage: 20 UG, DAILY (1/D)
     Dates: start: 20091201, end: 20091201
  2. METOPROLOL TARTRATE [Concomitant]
     Indication: BLOOD PRESSURE
  3. METHOTREXATE [Concomitant]
     Indication: RHEUMATOID ARTHRITIS
  4. HUMIRA [Concomitant]
     Indication: RHEUMATOID ARTHRITIS
  5. NEXIUM [Concomitant]
  6. FOLIC ACID [Concomitant]
  7. PHENERGAN HCL [Concomitant]
     Indication: NAUSEA
  8. MUSCLE RELAXANTS [Concomitant]
     Indication: INTERVERTEBRAL DISC DEGENERATION
  9. ELAVIL [Concomitant]
  10. AMBIEN [Concomitant]
     Indication: SLEEP DISORDER
  11. CRESTOR [Concomitant]

REACTIONS (13)
  - ARTHRALGIA [None]
  - BLOOD PRESSURE INCREASED [None]
  - BONE PAIN [None]
  - BURNING SENSATION [None]
  - CEREBROVASCULAR ACCIDENT [None]
  - COORDINATION ABNORMAL [None]
  - DISCOMFORT [None]
  - DYSARTHRIA [None]
  - HYPOTENSION [None]
  - MALAISE [None]
  - MOTOR DYSFUNCTION [None]
  - PAIN [None]
  - TRANSIENT ISCHAEMIC ATTACK [None]
